FAERS Safety Report 8281684 (Version 10)
Quarter: 2012Q4

REPORT INFORMATION
  Report Type: Report from Study
  Country: SE (occurrence: SE)
  Receive Date: 20111209
  Receipt Date: 20121220
  Transmission Date: 20130627
  Serious: Yes (Other)
  Sender: FDA-Public Use
  Company Number: SE-CELGENEUS-150-C5013-11113557

PATIENT
  Age: 73 Year
  Sex: Female
  Weight: 82 kg

DRUGS (12)
  1. CC-5013 [Suspect]
     Indication: MULTIPLE MYELOMA
     Dosage: 25 Milligram
     Route: 048
     Dates: start: 20100831
  2. CC-5013 [Suspect]
     Dosage: 25 Milligram
     Route: 048
     Dates: start: 20111122, end: 20111124
  3. DEXAMETHASONE [Suspect]
     Indication: MULTIPLE MYELOMA
     Dosage: 40 Milligram
     Route: 065
     Dates: start: 20100831
  4. DEXAMETHASONE [Suspect]
     Dosage: 40 Milligram
     Route: 065
     Dates: start: 20111122, end: 20111124
  5. METOPROLOL [Concomitant]
     Indication: HYPERTENSION
     Route: 065
     Dates: start: 20100420
  6. AMILORD/HYDROKLOTIAZID [Concomitant]
     Indication: HYPERTENSION
     Dosage: 5/50
     Route: 065
     Dates: start: 20100420
  7. DALTEPARINNATRIUM [Concomitant]
     Indication: PROPHYLAXIS
     Route: 065
     Dates: start: 20100831
  8. PAMIDRONSYRA [Concomitant]
     Indication: PROPHYLAXIS
     Route: 065
     Dates: start: 20100809
  9. OXYCODON [Concomitant]
     Indication: BACK PAIN
     Route: 065
     Dates: start: 20100723
  10. OXYCODON [Concomitant]
     Indication: CHEST PAIN
  11. PARACETAMOL [Concomitant]
     Indication: BACK PAIN
     Route: 065
     Dates: start: 20100817
  12. OXYCONTIN [Concomitant]
     Indication: BACK PAIN
     Route: 065
     Dates: start: 20110802

REACTIONS (2)
  - Squamous cell carcinoma of skin [Recovered/Resolved]
  - Actinic keratosis [Recovered/Resolved with Sequelae]
